FAERS Safety Report 8988236 (Version 1)
Quarter: 2012Q4

REPORT INFORMATION
  Report Type: 
  Country: BR (occurrence: BR)
  Receive Date: 20121227
  Receipt Date: 20121227
  Transmission Date: 20130627
  Serious: Yes (Hospitalization)
  Sender: FDA-Public Use
  Company Number: BR-ASTRAZENECA-2012SE95140

PATIENT
  Age: 600 Month
  Sex: Male

DRUGS (2)
  1. CRESTOR [Suspect]
     Indication: BLOOD CHOLESTEROL INCREASED
     Route: 048
     Dates: start: 2009, end: 201203
  2. OTHER MEDICATIONS [Concomitant]

REACTIONS (2)
  - Fatigue [Recovered/Resolved]
  - Dyspnoea [Recovered/Resolved]
